FAERS Safety Report 7241443-0 (Version None)
Quarter: 2011Q1

REPORT INFORMATION
  Report Type: 
  Country: None (occurrence: None)
  Receive Date: 20110114
  Receipt Date: 20110104
  Transmission Date: 20110831
  Serious: Yes (Hospitalization)
  Sender: FDA-Public Use
  Company Number: MPS1-1000388

PATIENT
  Age: 17 Month
  Sex: Male

DRUGS (5)
  1. CEFAZOLIN [Concomitant]
  2. ALDURAZYME [Suspect]
     Indication: MUCOPOLYSACCHARIDOSIS I
     Dosage: 0.58 MG/KG, INTRAVENOUS
     Route: 042
  3. FLORENT (SACCHAROMYCES BOULARDII) [Concomitant]
  4. AMLODIPINE [Concomitant]
  5. ALBUTEROL [Concomitant]

REACTIONS (4)
  - STAPHYLOCOCCUS TEST POSITIVE [None]
  - PYREXIA [None]
  - OSTEOMYELITIS [None]
  - DEVICE RELATED INFECTION [None]
